FAERS Safety Report 13676076 (Version 1)
Quarter: 2017Q2

REPORT INFORMATION
  Report Type: Report from Study
  Country: US (occurrence: US)
  Receive Date: 20170622
  Receipt Date: 20170622
  Transmission Date: 20170830
  Serious: Yes (Other)
  Sender: FDA-Public Use
  Company Number: US-ROCHE-1818567

PATIENT
  Age: 77 Year
  Sex: Male
  Weight: 79 kg

DRUGS (5)
  1. ESBRIET [Suspect]
     Active Substance: PIRFENIDONE
     Dosage: 9 CAPSULES A DAY
     Route: 048
     Dates: start: 201604
  2. ESBRIET [Suspect]
     Active Substance: PIRFENIDONE
     Route: 048
  3. BABY ASPIRIN [Concomitant]
     Active Substance: ASPIRIN
  4. ESBRIET [Suspect]
     Active Substance: PIRFENIDONE
     Indication: PULMONARY FIBROSIS
     Dosage: 9 CAPSULES A DAY
     Route: 048
     Dates: start: 201602
  5. OXYGEN. [Concomitant]
     Active Substance: OXYGEN
     Indication: PULMONARY FIBROSIS
     Dosage: AT NIGHT AND AS NEEDED DURING THE DAY
     Route: 065

REACTIONS (9)
  - Dyspnoea [Not Recovered/Not Resolved]
  - Decreased appetite [Recovering/Resolving]
  - Dysgeusia [Unknown]
  - Asthenia [Unknown]
  - Lung infection [Unknown]
  - Somnolence [Unknown]
  - Pulmonary fibrosis [Not Recovered/Not Resolved]
  - Weight decreased [Recovering/Resolving]
  - Depression [Unknown]

NARRATIVE: CASE EVENT DATE: 201604
